FAERS Safety Report 15533439 (Version 2)
Quarter: 2018Q4

REPORT INFORMATION
  Report Type: Spontaneous
  Country: US (occurrence: US)
  Receive Date: 20181019
  Receipt Date: 20181130
  Transmission Date: 20190205
  Serious: No
  Sender: FDA-Public Use
  Company Number: US-PFIZER INC-2018421076

PATIENT
  Age: 15 Year
  Sex: Female

DRUGS (1)
  1. ADVIL LIQUI-GELS [Suspect]
     Active Substance: IBUPROFEN
     Indication: PAIN
     Dosage: 4 DF, 3X/DAY/ 4 EVERY 8 HOURS

REACTIONS (2)
  - Drug ineffective [Unknown]
  - Prescribed overdose [Unknown]
